FAERS Safety Report 8873593 (Version 1)
Quarter: 2012Q4

REPORT INFORMATION
  Report Type: 
  Country: IL (occurrence: IL)
  Receive Date: 20121030
  Receipt Date: 20121030
  Transmission Date: 20130627
  Serious: Yes (Hospitalization, Other)
  Sender: FDA-Public Use
  Company Number: IL-COVIDIEN/TYCO HEALTHCARE/MALLINCKRODT-T201203679

PATIENT
  Age: 78 Year
  Sex: Female

DRUGS (3)
  1. OXYCODONE [Suspect]
     Indication: BONE PAIN
     Dosage: 20 mg, qd
     Dates: start: 200909
  2. LANTHANUM CARBONATE [Suspect]
     Indication: RENAL FAILURE CHRONIC
     Dosage: 3 g, UNK
     Dates: start: 201109, end: 201111
  3. LANTHANUM CARBONATE [Suspect]
     Dosage: 4.5 mg, qd
     Dates: start: 201111

REACTIONS (4)
  - Large intestine perforation [Recovered/Resolved]
  - Bacterial disease carrier [Unknown]
  - Bacteroides infection [Unknown]
  - Peritonitis [Unknown]
